FAERS Safety Report 5904730-1 (Version None)
Quarter: 2008Q3

REPORT INFORMATION
  Report Type: 
  Country: None (occurrence: None)
  Receive Date: 20080909
  Receipt Date: 20080505
  Transmission Date: 20090109
  Serious: Yes (Hospitalization)
  Sender: FDA-Public Use
  Company Number: 163-20785-08050288

PATIENT
  Age: 59 Year
  Sex: Male

DRUGS (4)
  1. THALOMID [Suspect]
     Indication: MULTIPLE MYELOMA
     Dosage: 200 MG, OD, ORAL
     Route: 048
     Dates: start: 20080211, end: 20080301
  2. WARFARIN SODIUM [Concomitant]
  3. DECADRON [Concomitant]
  4. PRILOSEC [Concomitant]

REACTIONS (3)
  - DYSPNOEA [None]
  - HYPOTENSION [None]
  - PULMONARY EMBOLISM [None]
